FAERS Safety Report 17031632 (Version 1)
Quarter: 2019Q4

REPORT INFORMATION
  Report Type: Spontaneous
  Country: US (occurrence: US)
  Receive Date: 20191113
  Receipt Date: 20191113
  Transmission Date: 20200122
  Serious: Yes (Hospitalization)
  Sender: FDA-Public Use
  Company Number: None

PATIENT
  Sex: Female

DRUGS (11)
  1. OMNITROPE [Suspect]
     Active Substance: SOMATROPIN
     Indication: GROWTH RETARDATION
     Route: 058
     Dates: start: 20190722
  2. XIFAXAN TAB [Concomitant]
     Dates: start: 20191113
  3. GABAPENTIN SOL [Concomitant]
     Dates: start: 20190913
  4. MICROLET MS LANCETS [Concomitant]
     Dates: start: 20190313
  5. ERYTHROM ETH SOL [Concomitant]
     Dates: start: 20190923
  6. CONTOUR TEST [Concomitant]
     Dates: start: 20190506
  7. MELATONIN [Concomitant]
     Active Substance: MELATONIN
     Dates: start: 20190921
  8. ELIDEL [Concomitant]
     Active Substance: PIMECROLIMUS
     Dates: start: 20191113
  9. VITAMIN D [Concomitant]
     Active Substance: VITAMIN D NOS
     Dates: start: 20190904
  10. FLOVENT HFA AER [Concomitant]
     Dates: start: 20191008
  11. VUSION [Concomitant]
     Active Substance: MICONAZOLE NITRATE\PETROLATUM\ZINC OXIDE
     Dates: start: 20190829

REACTIONS (1)
  - Pyrexia [None]
